FAERS Safety Report 6150432-9 (Version None)
Quarter: 2009Q2

REPORT INFORMATION
  Report Type: 
  Country: None (occurrence: None)
  Receive Date: 20090409
  Receipt Date: 20090401
  Transmission Date: 20091009
  Serious: Yes (Hospitalization)
  Sender: FDA-Public Use
  Company Number: FR-JNJFOC-20090400393

PATIENT
  Age: 58 Year
  Sex: Female

DRUGS (10)
  1. IMODIUM [Suspect]
     Indication: GASTROENTERITIS
     Route: 048
  2. DEBRIDAT [Suspect]
     Indication: GASTROENTERITIS
     Route: 048
  3. LERCAN [Concomitant]
  4. LEVOTHYROXINE SODIUM [Concomitant]
  5. PLAVIX [Concomitant]
  6. TRIATEC [Concomitant]
  7. CARDENSIEL [Concomitant]
  8. TAHOR [Concomitant]
  9. CALCIDIA [Concomitant]
  10. UN-ALPHA [Concomitant]

REACTIONS (2)
  - ACUTE GENERALISED EXANTHEMATOUS PUSTULOSIS [None]
  - RENAL FAILURE ACUTE [None]
